FAERS Safety Report 4280270-3 (Version None)
Quarter: 2004Q1

REPORT INFORMATION
  Report Type: 
  Country: None (occurrence: None)
  Receive Date: 20040126
  Receipt Date: 20040108
  Transmission Date: 20041129
  Serious: Yes (Other)
  Sender: FDA-Public Use
  Company Number: 2003029612

PATIENT
  Sex: Female
  Weight: 72.5755 kg

DRUGS (5)
  1. GEODON [Suspect]
     Indication: BIPOLAR DISORDER
     Dosage: 60 MG (BID), ORAL
     Route: 048
     Dates: start: 20011206
  2. SINEQUAN [Suspect]
     Indication: DEPRESSIVE SYMPTOM
     Dosage: 275 MG (DAILY), ORAL
     Route: 048
     Dates: start: 19850101, end: 20030601
  3. VENLAFAXINE HCL [Concomitant]
  4. DYAZIDE [Concomitant]
  5. PROBUCOL [Concomitant]

REACTIONS (6)
  - DIZZINESS [None]
  - DRUG INTERACTION [None]
  - ELECTROCARDIOGRAM QT CORRECTED INTERVAL PROLONGED [None]
  - SINUSITIS [None]
  - SLEEP APNOEA SYNDROME [None]
  - SOMNOLENCE [None]
